FAERS Safety Report 14133596 (Version 6)
Quarter: 2017Q4

REPORT INFORMATION
  Report Type: Report from Study
  Country: FR (occurrence: FR)
  Receive Date: 20171026
  Receipt Date: 20171120
  Transmission Date: 20180321
  Serious: Yes (Hospitalization)
  Sender: FDA-Public Use
  Company Number: FR-JNJFOC-20171027836

PATIENT
  Age: 17 Year
  Sex: Male
  Weight: 54 kg

DRUGS (2)
  1. BUDESONIDE. [Concomitant]
     Active Substance: BUDESONIDE
     Route: 065
  2. REMICADE [Suspect]
     Active Substance: INFLIXIMAB
     Indication: CROHN^S DISEASE
     Route: 042
     Dates: start: 201603

REACTIONS (3)
  - Crohn^s disease [Recovered/Resolved with Sequelae]
  - Intestinal fistula [Recovered/Resolved with Sequelae]
  - Abscess intestinal [Recovered/Resolved with Sequelae]

NARRATIVE: CASE EVENT DATE: 201705
